FAERS Safety Report 8365996-4 (Version None)
Quarter: 2012Q2

REPORT INFORMATION
  Report Type: 
  Country: None (occurrence: None)
  Receive Date: 20120517
  Receipt Date: 20120511
  Transmission Date: 20120825
  Serious: No
  Sender: FDA-Public Use
  Company Number: US-PFIZER INC-2012116870

PATIENT
  Sex: Female

DRUGS (2)
  1. PERCOCET [Suspect]
     Dosage: UNK
  2. XALKORI [Suspect]
     Indication: MALIGNANT SOFT TISSUE NEOPLASM
     Dosage: 250 MG, 2X/DAY (1 CAPSULE)
     Route: 048

REACTIONS (1)
  - VOMITING [None]
